FAERS Safety Report 9487553 (Version 1)
Quarter: 2013Q3

REPORT INFORMATION
  Report Type: Spontaneous
  Country: IT (occurrence: IT)
  Receive Date: 20130829
  Receipt Date: 20130829
  Transmission Date: 20140515
  Serious: Yes (Hospitalization)
  Sender: FDA-Public Use
  Company Number: IT-BAYER-2013-104880

PATIENT
  Age: 47 Year
  Sex: Male

DRUGS (6)
  1. ASPIRINA [Suspect]
     Indication: HEADACHE
     Dosage: 1000 MG, PRN
     Route: 048
     Dates: start: 20130502, end: 20130505
  2. ASPIRINA [Suspect]
     Indication: MALAISE
  3. ASPIRINA [Suspect]
     Indication: ASTHENIA
  4. ASPIRINA [Suspect]
     Indication: HYPERHIDROSIS
  5. HUMALOG [Concomitant]
     Dosage: UNK
  6. LEVEMIR [Concomitant]

REACTIONS (5)
  - Abdominal pain upper [Recovered/Resolved]
  - Anaemia [Recovered/Resolved]
  - Haematochezia [Recovered/Resolved]
  - Presyncope [Recovered/Resolved]
  - Duodenal ulcer [Recovered/Resolved]
